FAERS Safety Report 9893749 (Version 1)
Quarter: 2014Q1

REPORT INFORMATION
  Report Type: Spontaneous
  Country: JP (occurrence: JP)
  Receive Date: 20140213
  Receipt Date: 20140213
  Transmission Date: 20141002
  Serious: Yes (Other)
  Sender: FDA-Public Use
  Company Number: JP-SA-2014SA017678

PATIENT
  Age: 92 Day
  Sex: Female

DRUGS (4)
  1. FUROSEMIDE [Suspect]
     Indication: LUNG DISORDER
     Route: 065
  2. HYDROCORTISONE [Suspect]
     Indication: LUNG DISORDER
     Route: 065
  3. DEXAMETHASONE [Suspect]
     Indication: LUNG DISORDER
     Route: 065
  4. ANTIBIOTICS [Concomitant]

REACTIONS (4)
  - Humerus fracture [Recovered/Resolved]
  - C-reactive protein increased [Recovered/Resolved]
  - Post-traumatic osteoporosis [Unknown]
  - Off label use [Unknown]
